FAERS Safety Report 7441708-3 (Version None)
Quarter: 2011Q2

REPORT INFORMATION
  Report Type: 
  Country: None (occurrence: None)
  Receive Date: 20110428
  Receipt Date: 20110419
  Transmission Date: 20111010
  Serious: Yes (Hospitalization, Other)
  Sender: FDA-Public Use
  Company Number: US-B.I. PHARMACEUTICALS,INC./RIDGEFIELD-2011-BP-11169BP

PATIENT
  Sex: Female

DRUGS (7)
  1. COZAAR [Concomitant]
     Indication: HYPERTENSION
     Dosage: 50 MG
     Route: 048
  2. FUROSEMIDE [Concomitant]
     Indication: FLUID RETENTION
     Dosage: 20 MG
     Route: 048
  3. SPIRIVA [Suspect]
     Indication: CHRONIC OBSTRUCTIVE PULMONARY DISEASE
     Dosage: 18 MCG
     Route: 055
     Dates: start: 20040101, end: 20110301
  4. LEXAPRO [Concomitant]
     Indication: ANXIETY
     Dosage: 20 MG
     Route: 048
  5. SPIRIVA [Suspect]
     Indication: EMPHYSEMA
     Dosage: 18 MCG
     Route: 055
     Dates: start: 20110301
  6. ATIVAN [Concomitant]
     Indication: INSOMNIA
     Dosage: 10 MG
     Route: 048
  7. SYMBICORT [Concomitant]
     Indication: CHRONIC OBSTRUCTIVE PULMONARY DISEASE
     Route: 055

REACTIONS (5)
  - LYMPHADENOPATHY [None]
  - BREAST CANCER [None]
  - VIRAL INFECTION [None]
  - EYE DISORDER [None]
  - RESPIRATORY FAILURE [None]
